FAERS Safety Report 10708135 (Version 5)
Quarter: 2015Q2

REPORT INFORMATION
  Report Type: Spontaneous
  Country: US (occurrence: US)
  Receive Date: 20150113
  Receipt Date: 20150508
  Transmission Date: 20150821
  Serious: Yes (Other)
  Sender: FDA-Public Use
  Company Number: US-PFIZER INC-2015011202

PATIENT
  Age: 53 Year
  Sex: Female

DRUGS (8)
  1. IBUPROFEN. [Suspect]
     Active Substance: IBUPROFEN
     Indication: MYOSITIS
     Dosage: 100 MG, 2X/DAY
     Dates: start: 201412
  2. ADVIL [Suspect]
     Active Substance: IBUPROFEN
     Indication: EYE DISORDER
  3. IBUPROFEN. [Suspect]
     Active Substance: IBUPROFEN
     Indication: EYE PAIN
  4. VITAMIN C [Concomitant]
     Active Substance: ASCORBIC ACID
     Indication: HYPERSENSITIVITY
  5. IBUPROFEN. [Suspect]
     Active Substance: IBUPROFEN
     Indication: EYE INFLAMMATION
     Dosage: 1 TABLET, DAILY AS NEEDED
     Route: 048
     Dates: start: 201409
  6. VITAMIN C [Concomitant]
     Active Substance: ASCORBIC ACID
     Indication: ANTIALLERGIC THERAPY
     Dosage: UNK, AS NEEDED
  7. PRED FORTE [Concomitant]
     Active Substance: PREDNISOLONE ACETATE
     Dosage: 1 GTT, 1X/DAY
     Dates: start: 201412
  8. ADVIL [Suspect]
     Active Substance: IBUPROFEN
     Indication: EYE SWELLING
     Dosage: UNK,

REACTIONS (6)
  - Eye injury [Recovered/Resolved]
  - Gastric disorder [Recovered/Resolved]
  - Dyspepsia [Unknown]
  - Expired product administered [Unknown]
  - Glossodynia [Unknown]
  - Eye haemorrhage [Recovered/Resolved]

NARRATIVE: CASE EVENT DATE: 201407
